FAERS Safety Report 20467945 (Version 1)
Quarter: 2022Q1

REPORT INFORMATION
  Report Type: Spontaneous
  Country: US (occurrence: US)
  Receive Date: 20220214
  Receipt Date: 20220214
  Transmission Date: 20220423
  Serious: Yes (Hospitalization, Other)
  Sender: FDA-Public Use
  Company Number: US-ABBVIE-22K-163-4275642-00

PATIENT
  Age: 72 Year
  Sex: Male

DRUGS (3)
  1. IMBRUVICA [Suspect]
     Active Substance: IBRUTINIB
     Indication: Chronic lymphocytic leukaemia
     Route: 048
  2. VENETOCLAX [Concomitant]
     Active Substance: VENETOCLAX
     Indication: Chronic lymphocytic leukaemia
  3. ABITUZUMAB [Concomitant]
     Active Substance: ABITUZUMAB
     Indication: Chronic lymphocytic leukaemia

REACTIONS (3)
  - Pericarditis [Unknown]
  - Pain [Unknown]
  - Drug ineffective [Unknown]
